FAERS Safety Report 7209979-6 (Version None)
Quarter: 2011Q1

REPORT INFORMATION
  Report Type: 
  Country: None (occurrence: None)
  Receive Date: 20110105
  Receipt Date: 20101227
  Transmission Date: 20110831
  Serious: No
  Sender: FDA-Public Use
  Company Number: US-BIOGENIDEC-2010BI045280

PATIENT
  Age: 56 Year
  Sex: Female

DRUGS (1)
  1. TYSABRI [Suspect]
     Indication: MULTIPLE SCLEROSIS
     Route: 042

REACTIONS (5)
  - PYREXIA [None]
  - NASOPHARYNGITIS [None]
  - GAIT DISTURBANCE [None]
  - PAIN [None]
  - SALIVARY HYPERSECRETION [None]
